FAERS Safety Report 7345556-4 (Version None)
Quarter: 2011Q1

REPORT INFORMATION
  Report Type: 
  Country: None (occurrence: None)
  Receive Date: 20110310
  Receipt Date: 20110303
  Transmission Date: 20110831
  Serious: Yes (Other)
  Sender: FDA-Public Use
  Company Number: US-AMGEN-USASP2011012280

PATIENT
  Sex: Male

DRUGS (3)
  1. ZOMETA [Concomitant]
  2. XGEVA [Suspect]
  3. XGEVA [Suspect]
     Indication: METASTASES TO BONE
     Dosage: 120 MG, Q4WK
     Dates: start: 20110201

REACTIONS (7)
  - HYPOAESTHESIA ORAL [None]
  - VISION BLURRED [None]
  - PAIN IN JAW [None]
  - HEADACHE [None]
  - HYPOAESTHESIA FACIAL [None]
  - CALCIUM DEFICIENCY [None]
  - MACULE [None]
